FAERS Safety Report 14928634 (Version 1)
Quarter: 2018Q2

REPORT INFORMATION
  Report Type: Spontaneous
  Country: DE (occurrence: DE)
  Receive Date: 20180523
  Receipt Date: 20180523
  Transmission Date: 20180711
  Serious: Yes (Hospitalization)
  Sender: FDA-Public Use
  Company Number: DE-PFIZER INC-2018203490

PATIENT
  Age: 53 Year
  Sex: Male

DRUGS (7)
  1. RAMIPRIL. [Concomitant]
     Active Substance: RAMIPRIL
     Dosage: 2.5 MG, 1-0-0-0
  2. EZETIMIBE/SIMVASTATIN [Concomitant]
     Dosage: 10|40 MG, 0-0-1-0
  3. FENTANYL. [Suspect]
     Active Substance: FENTANYL
     Dosage: UNK
     Route: 062
  4. TRAMADOL. [Interacting]
     Active Substance: TRAMADOL
     Dosage: 150 MG, 0-0-1-0, GLOBULES
  5. ACETYLSALICYLSAEURE [Concomitant]
     Active Substance: ASPIRIN
     Dosage: 100 MG, 1-0-0-0
  6. NEBIVOLOL. [Concomitant]
     Active Substance: NEBIVOLOL
     Dosage: 5 MG, 0.5-0-0-0
  7. OMEGA-3-ACID ETHYL ESTER [Concomitant]
     Active Substance: OMEGA-3-ACID ETHYL ESTERS
     Dosage: 1000 MG, 1-0-1-0

REACTIONS (5)
  - Accidental overdose [Recovered/Resolved]
  - Labelled drug-drug interaction medication error [Recovered/Resolved]
  - Extra dose administered [Recovered/Resolved]
  - Drug prescribing error [Recovered/Resolved]
  - Seizure [Recovered/Resolved]

NARRATIVE: CASE EVENT DATE: 20151002
